FAERS Safety Report 9224911 (Version 2)
Quarter: 2013Q2

REPORT INFORMATION
  Report Type: Spontaneous
  Country: JP (occurrence: JP)
  Receive Date: 20130411
  Receipt Date: 20130419
  Transmission Date: 20140414
  Serious: Yes (Hospitalization)
  Sender: FDA-Public Use
  Company Number: JP-PFIZER INC-2013108989

PATIENT
  Age: 2 Decade
  Sex: Male

DRUGS (2)
  1. ZITHROMAC [Suspect]
     Dosage: UNK
     Route: 048
  2. MIGSIS [Suspect]
     Dosage: UNK
     Route: 048

REACTIONS (1)
  - Iron deficiency anaemia [Recovering/Resolving]
